FAERS Safety Report 6278575-X (Version None)
Quarter: 2009Q3

REPORT INFORMATION
  Report Type: 
  Country: None (occurrence: None)
  Receive Date: 20090722
  Receipt Date: 20081017
  Transmission Date: 20100115
  Serious: No
  Sender: FDA-Public Use
  Company Number: US-BAUSCH-2008BL004507

PATIENT
  Age: 76 Year
  Sex: Female

DRUGS (6)
  1. OPCON-A [Suspect]
     Indication: EYE ALLERGY
     Route: 047
     Dates: start: 20080906, end: 20080906
  2. OPCON-A [Suspect]
     Indication: DRY EYE
     Route: 047
     Dates: start: 20080906, end: 20080906
  3. DILTIAZEM [Concomitant]
  4. MAGNESIUM [Concomitant]
  5. SINGULAIR ^MERCK FROSST^ [Concomitant]
  6. CALCIUM [Concomitant]

REACTIONS (1)
  - EYE PAIN [None]
